FAERS Safety Report 21409643 (Version 1)
Quarter: 2022Q4

REPORT INFORMATION
  Report Type: Spontaneous
  Country: US (occurrence: None)
  Receive Date: 20221003
  Receipt Date: 20221003
  Transmission Date: 20230113
  Serious: No
  Sender: FDA-Public Use
  Company Number: None

PATIENT
  Age: 78 Year
  Sex: Female

DRUGS (1)
  1. VERZENIO [Suspect]
     Active Substance: ABEMACICLIB
     Indication: Breast cancer female
     Dosage: TAKE ONE  TABLET BY MOUTH EVERY OTHER DAY ALTERNATING WITH TWO TABLETS ON OPPOSITE DAYS
     Route: 048
     Dates: start: 20200205, end: 20220919

REACTIONS (1)
  - Pruritus [None]

NARRATIVE: CASE EVENT DATE: 20220901
